FAERS Safety Report 9164028 (Version 2)
Quarter: 2013Q3

REPORT INFORMATION
  Report Type: Report from Study
  Country: ES (occurrence: ES)
  Receive Date: 20130313
  Receipt Date: 20130820
  Transmission Date: 20140515
  Serious: Yes (Death, Other)
  Sender: FDA-Public Use
  Company Number: ES-CELGENEUS-144-21880-13030579

PATIENT
  Sex: 0

DRUGS (4)
  1. REVLIMID [Suspect]
     Indication: CHRONIC LYMPHOCYTIC LEUKAEMIA
     Dosage: 2.5MG, 5MG, 10MG, 15MG, 20MG, 25MG
     Route: 048
     Dates: start: 200911, end: 201211
  2. RITUXIMAB [Suspect]
     Indication: CHRONIC LYMPHOCYTIC LEUKAEMIA
     Dosage: 375 MILLIGRAM/SQ. METER
     Route: 065
     Dates: start: 200911, end: 201211
  3. RITUXIMAB [Suspect]
     Dosage: 500 MILLIGRAM/SQ. METER
     Route: 065
     Dates: start: 200911, end: 201211
  4. G-CSF [Concomitant]
     Indication: NEUTROPENIA
     Route: 065

REACTIONS (7)
  - Disease progression [Fatal]
  - Neutropenia [Unknown]
  - Infection [Fatal]
  - Tumour flare [Unknown]
  - Constipation [Unknown]
  - Amyotrophic lateral sclerosis [Unknown]
  - Gastrointestinal haemorrhage [Unknown]
